FAERS Safety Report 7707369-0 (Version None)
Quarter: 2011Q3

REPORT INFORMATION
  Report Type: 
  Country: None (occurrence: None)
  Receive Date: 20110824
  Receipt Date: 20110817
  Transmission Date: 20111222
  Serious: Yes (Other)
  Sender: FDA-Public Use
  Company Number: US-PFIZER INC-2011176356

PATIENT
  Sex: Male
  Weight: 113 kg

DRUGS (2)
  1. LATANOPROST [Suspect]
     Indication: GLAUCOMA
     Dosage: ONE DROP IN EACH EYE
     Dates: start: 20110601, end: 20110101
  2. DORZOLAMIDE [Concomitant]
     Indication: GLAUCOMA
     Dosage: ONE DROP IN EACH EYE, 2X/DAY

REACTIONS (1)
  - INTRAOCULAR PRESSURE INCREASED [None]
